FAERS Safety Report 22519998 (Version 6)
Quarter: 2024Q1

REPORT INFORMATION
  Report Type: Spontaneous
  Country: CA (occurrence: CA)
  Receive Date: 20230605
  Receipt Date: 20240117
  Transmission Date: 20240410
  Serious: Yes (Hospitalization, Other)
  Sender: FDA-Public Use
  Company Number: CA-PFIZER INC-202300207877

PATIENT
  Age: 58 Year
  Sex: Male
  Weight: 84.5 kg

DRUGS (14)
  1. ABRILADA [Suspect]
     Active Substance: ADALIMUMAB-AFZB
     Indication: Crohn^s disease
     Dosage: 1 DF, 160 MG ON WEEK 0, 80 MG ON WEEK 2, THEN 40 MG EVERY OTHER WEEK FROM WEEK 4 PREFILLED SYRINGE
     Route: 058
     Dates: start: 20230424
  2. ABRILADA [Suspect]
     Active Substance: ADALIMUMAB-AFZB
     Dosage: 1 DF, 160 MG ON WEEK 0, 80 MG ON WEEK 2, THEN 40 MG EVERY OTHER WEEK FROM WEEK 4
     Route: 058
     Dates: start: 20230518
  3. ABRILADA [Suspect]
     Active Substance: ADALIMUMAB-AFZB
     Dosage: 160 MG ON WEEK 0, 80 MG ON WEEK 2, THEN 40 MG EVERY OTHER WEEK FROM WEEK 4
     Route: 058
     Dates: start: 20231025
  4. ABRILADA [Suspect]
     Active Substance: ADALIMUMAB-AFZB
     Dosage: 80 MG, EVERY 2 WEEKS
     Route: 058
     Dates: start: 20231108
  5. ABRILADA [Suspect]
     Active Substance: ADALIMUMAB-AFZB
     Dosage: 1 DF, 160 MG ON WEEK 0, 80 MG ON WEEK 2, THEN 40 MG EVERY OTHER WEEK FROM WEEK 4
     Route: 058
  6. ABRILADA [Suspect]
     Active Substance: ADALIMUMAB-AFZB
     Dosage: 80 MG, EVERY 2 WEEKS
     Route: 058
     Dates: start: 20231212
  7. ABRILADA [Suspect]
     Active Substance: ADALIMUMAB-AFZB
     Dosage: 500 MG, EVERY 2 WEEKS (3 WEEKS AND 3 DAYS)
     Route: 058
     Dates: start: 20240105
  8. AVENTYL [Concomitant]
     Active Substance: NORTRIPTYLINE HYDROCHLORIDE
     Dosage: UNK
  9. AVIANE [Concomitant]
     Active Substance: ETHINYL ESTRADIOL\LEVONORGESTREL
     Dosage: UNK
  10. APIXABAN [Concomitant]
     Active Substance: APIXABAN
     Dosage: UNK
  11. BACLOFEN [Concomitant]
     Active Substance: BACLOFEN
     Dosage: UNK
  12. GABAPENTIN [Concomitant]
     Active Substance: GABAPENTIN
     Dosage: UNK
  13. MORPHINE SULFATE [Concomitant]
     Active Substance: MORPHINE SULFATE
     Dosage: UNK
  14. VENLAFAXINE [Concomitant]
     Active Substance: VENLAFAXINE HYDROCHLORIDE
     Dosage: UNK

REACTIONS (8)
  - Ankle fracture [Not Recovered/Not Resolved]
  - Thrombosis [Not Recovered/Not Resolved]
  - Pulmonary embolism [Unknown]
  - Weight increased [Not Recovered/Not Resolved]
  - Erythema nodosum [Recovered/Resolved]
  - Anal fissure [Recovered/Resolved]
  - Inappropriate schedule of product administration [Unknown]
  - Incorrect dose administered [Unknown]

NARRATIVE: CASE EVENT DATE: 20230101
